FAERS Safety Report 12671061 (Version 1)
Quarter: 2016Q3

REPORT INFORMATION
  Report Type: Spontaneous
  Country: US (occurrence: US)
  Receive Date: 20160822
  Receipt Date: 20160822
  Transmission Date: 20161109
  Serious: Yes (Other)
  Sender: FDA-Public Use
  Company Number: US-DRREDDYS-USA/USA/16/0082308

PATIENT
  Sex: Male

DRUGS (1)
  1. ZENATANE [Suspect]
     Active Substance: ISOTRETINOIN
     Indication: ACNE
     Route: 065
     Dates: start: 20160708, end: 20160808

REACTIONS (9)
  - Arthralgia [Unknown]
  - Mood altered [Unknown]
  - Visual impairment [Unknown]
  - Dry skin [Unknown]
  - Agitation [Unknown]
  - Headache [Unknown]
  - Abdominal pain [Unknown]
  - Psychiatric symptom [Unknown]
  - Vision blurred [Unknown]
